FAERS Safety Report 11511848 (Version 3)
Quarter: 2015Q3

REPORT INFORMATION
  Report Type: Spontaneous
  Country: CN (occurrence: CN)
  Receive Date: 20150916
  Receipt Date: 20150918
  Transmission Date: 20151125
  Serious: Yes (Death, Hospitalization, Other)
  Sender: FDA-Public Use
  Company Number: CN-009507513-1509CHN007020

PATIENT
  Age: 62 Year
  Sex: Male
  Weight: 60 kg

DRUGS (30)
  1. EMEND [Suspect]
     Active Substance: APREPITANT
     Indication: PROPHYLAXIS OF NAUSEA AND VOMITING
     Dosage: 125 MG, ONCE, DAY 1
     Route: 048
     Dates: start: 20150730, end: 20150730
  2. DEXAMETHASONE. [Concomitant]
     Active Substance: DEXAMETHASONE
     Indication: ANTIALLERGIC THERAPY
  3. LEVOFLOXACIN HYDROCHLORIDE (+) SODIUM CHLORIDE [Concomitant]
     Indication: ANTIBIOTIC THERAPY
     Dosage: 0.6 G, QD
     Route: 041
     Dates: start: 20150724, end: 20150725
  4. ONDANSETRON [Concomitant]
     Active Substance: ONDANSETRON
     Indication: PROPHYLAXIS OF NAUSEA AND VOMITING
     Dosage: 16 MG, ONCE
     Route: 041
     Dates: start: 20150730, end: 20150730
  5. LENTINAN [Concomitant]
     Active Substance: LENTINAN
     Indication: IMMUNE ENHANCEMENT THERAPY
     Dosage: 1 MG, BID
     Route: 041
     Dates: start: 20150730, end: 20150730
  6. EMEND [Suspect]
     Active Substance: APREPITANT
     Dosage: 80 MG, ONCE, DAY 3
     Route: 048
     Dates: start: 20150801, end: 20150801
  7. SODIUM DEOXYRIBONUCLEATE [Concomitant]
     Indication: PROPHYLAXIS
     Dosage: 150 MG, ONCE
     Route: 041
     Dates: start: 20150730, end: 20150730
  8. AMIFOSTINE. [Concomitant]
     Active Substance: AMIFOSTINE
     Indication: PROPHYLAXIS
     Dosage: 1.5 G, ONCE
     Route: 041
     Dates: start: 20150730, end: 20150730
  9. NIMESULIDE [Concomitant]
     Active Substance: NIMESULIDE
     Dosage: 0.1 G, ONCE
     Route: 048
     Dates: start: 20150727, end: 20150727
  10. PEMETREXED DISODIUM [Concomitant]
     Active Substance: PEMETREXED DISODIUM
     Indication: CHEMOTHERAPY
     Dosage: 0.8 G, ONCE, TREATMENT CYCLE 1, TREATMENT REGIMEN PP
     Route: 041
     Dates: start: 20150730, end: 20150730
  11. POTASSIUM PHOSPHATE, DIBASIC [Concomitant]
     Active Substance: POTASSIUM PHOSPHATE, DIBASIC
     Dosage: 4 ML, ONCE
     Route: 041
     Dates: start: 20150730, end: 20150730
  12. POTASSIUM CHLORIDE. [Concomitant]
     Active Substance: POTASSIUM CHLORIDE
     Indication: MINERAL SUPPLEMENTATION
     Dosage: 10 ML, ONCE
     Route: 041
     Dates: start: 20150725, end: 20150725
  13. POTASSIUM CHLORIDE. [Concomitant]
     Active Substance: POTASSIUM CHLORIDE
     Dosage: 10 ML, ONCE
     Route: 041
     Dates: start: 20150728, end: 20150728
  14. POTASSIUM CHLORIDE. [Concomitant]
     Active Substance: POTASSIUM CHLORIDE
     Dosage: 10 ML, QD
     Route: 041
     Dates: start: 20150730, end: 20150801
  15. POTASSIUM CHLORIDE. [Concomitant]
     Active Substance: POTASSIUM CHLORIDE
     Dosage: 10 ML, ONCE
     Route: 041
     Dates: start: 20150731, end: 20150731
  16. NIMESULIDE [Concomitant]
     Active Substance: NIMESULIDE
     Indication: ANTIINFLAMMATORY THERAPY
     Dosage: 0.1 G, ONCE
     Route: 048
     Dates: start: 20150725, end: 20150725
  17. NIMESULIDE [Concomitant]
     Active Substance: NIMESULIDE
     Dosage: 0.1 G, ONCE
     Route: 048
     Dates: start: 20150729, end: 20150729
  18. EMEND [Suspect]
     Active Substance: APREPITANT
     Dosage: 80 MG, ONCE, DAY 2
     Route: 048
     Dates: start: 20150731, end: 20150731
  19. PIPERACILLIN AND TAZOBACTAM [Concomitant]
     Active Substance: PIPERACILLIN SODIUM\TAZOBACTAM SODIUM
     Indication: ANTIBIOTIC THERAPY
     Dosage: TOTAL DAILY DOSE 4.5 G, FREQUENCY REPORTD AS Q8H
     Route: 041
     Dates: start: 20150725, end: 20150729
  20. BO ZHI TANG TAI ZHU SHE YE [Concomitant]
     Indication: IMMUNE ENHANCEMENT THERAPY
     Dosage: 10 ML, QD
     Route: 041
     Dates: start: 20150725, end: 20150729
  21. DEXAMETHASONE. [Concomitant]
     Active Substance: DEXAMETHASONE
     Indication: ANTIINFLAMMATORY THERAPY
     Dosage: 10 MG, QD
     Route: 041
     Dates: start: 20150730, end: 20150801
  22. CISPLATIN. [Concomitant]
     Active Substance: CISPLATIN
     Indication: CHEMOTHERAPY
     Dosage: 126 MG, ONCE, TREATMENT CYCLE 1, TREATMENT REGIMEN: PP
     Route: 041
     Dates: start: 20150730, end: 20150730
  23. PANTOPRAZOLE SODIUM. [Concomitant]
     Active Substance: PANTOPRAZOLE SODIUM
     Indication: PROPHYLAXIS
     Dosage: 40 MG, QD
     Route: 041
     Dates: start: 20150730, end: 20150801
  24. PALONOSETRON HYDROCHLORIDE [Concomitant]
     Active Substance: PALONOSETRON HYDROCHLORIDE
     Indication: PROPHYLAXIS OF NAUSEA AND VOMITING
     Dosage: 0.25 MG, QD
     Route: 041
     Dates: start: 20150730, end: 20150801
  25. DIISOPROPYLAMINE DICHLOROACETATE [Concomitant]
     Indication: PROPHYLAXIS
     Dosage: 160 MG, QD
     Route: 041
     Dates: start: 20150730, end: 20150801
  26. DIPHENHYDRAMINE. [Concomitant]
     Active Substance: DIPHENHYDRAMINE
     Indication: ANTIALLERGIC THERAPY
     Dosage: 20 MG, ONCE
     Route: 030
     Dates: start: 20150730, end: 20150730
  27. CYANOCOBALAMIN. [Concomitant]
     Active Substance: CYANOCOBALAMIN
     Indication: CHEMOTHERAPY TOXICITY ATTENUATION
     Dosage: 1000 MG, ONCE
     Route: 030
     Dates: start: 20150729, end: 20150729
  28. SODIUM DEOXYRIBONUCLEATE [Concomitant]
     Dosage: 150 MG, QD
     Route: 041
     Dates: start: 20150730, end: 20150801
  29. POTASSIUM PHOSPHATE, DIBASIC [Concomitant]
     Active Substance: POTASSIUM PHOSPHATE, DIBASIC
     Indication: PARENTERAL NUTRITION
     Dosage: 4 ML, QD
     Route: 041
     Dates: start: 20150730, end: 20150801
  30. MANNITOL. [Concomitant]
     Active Substance: MANNITOL
     Indication: REDUCTION OF INCREASED INTRACRANIAL PRESSURE
     Dosage: TOTAL DAILY DOSE 250 ML/CC, BID
     Route: 041
     Dates: start: 20150730, end: 20150730

REACTIONS (4)
  - Cerebral infarction [Fatal]
  - Lung infection [Unknown]
  - Ventricular extrasystoles [Recovered/Resolved]
  - Bone marrow failure [Unknown]

NARRATIVE: CASE EVENT DATE: 201508
